FAERS Safety Report 5576578-1 (Version None)
Quarter: 2007Q4

REPORT INFORMATION
  Report Type: 
  Country: None (occurrence: None)
  Receive Date: 20071228
  Receipt Date: 20071026
  Transmission Date: 20080405
  Serious: No
  Sender: FDA-Public Use
  Company Number: A0690067A

PATIENT
  Age: 65 Year
  Sex: Female

DRUGS (3)
  1. FLOVENT [Suspect]
     Dosage: 1PUFF TWICE PER DAY
     Route: 055
     Dates: start: 20071005, end: 20071011
  2. ZETIA [Concomitant]
  3. NEXIUM [Concomitant]

REACTIONS (3)
  - CRYING [None]
  - DEPRESSION [None]
  - DYSPNOEA [None]
